FAERS Safety Report 6645415-6 (Version None)
Quarter: 2010Q1

REPORT INFORMATION
  Report Type: 
  Country: None (occurrence: None)
  Receive Date: 20100322
  Receipt Date: 20100311
  Transmission Date: 20100710
  Serious: Yes (Other)
  Sender: FDA-Public Use
  Company Number: US-BAXTER-2010BH000868

PATIENT
  Sex: Male
  Weight: 90 kg

DRUGS (6)
  1. HEPARIN SODIUM INJECTION [Suspect]
     Indication: SURGERY
     Route: 042
     Dates: start: 20071017, end: 20071021
  2. PEPCID [Concomitant]
     Indication: DRUG USE FOR UNKNOWN INDICATION
     Route: 065
  3. ASPIRIN [Concomitant]
     Indication: DRUG USE FOR UNKNOWN INDICATION
     Route: 065
  4. IBUPROFEN [Concomitant]
     Indication: DRUG USE FOR UNKNOWN INDICATION
     Route: 065
  5. AMIODARONE [Concomitant]
     Indication: DRUG USE FOR UNKNOWN INDICATION
     Route: 065
  6. METOPROLOL TARTRATE [Concomitant]
     Indication: DRUG USE FOR UNKNOWN INDICATION
     Route: 065

REACTIONS (10)
  - ARRHYTHMIA [None]
  - ASTHENIA [None]
  - ATRIAL FIBRILLATION [None]
  - BLOOD PRESSURE DECREASED [None]
  - CHEST PAIN [None]
  - DRUG HYPERSENSITIVITY [None]
  - HEPARIN-INDUCED THROMBOCYTOPENIA [None]
  - HYPERTENSION [None]
  - PULMONARY EMBOLISM [None]
  - SYNCOPE [None]
